FAERS Safety Report 14980178 (Version 1)
Quarter: 2018Q3

REPORT INFORMATION
  Report Type: Spontaneous
  Country: US (occurrence: US)
  Receive Date: 20180606
  Receipt Date: 20180606
  Transmission Date: 20181010
  Serious: No
  Sender: FDA-Public Use
  Company Number: US-ALLERGAN-1747118US

PATIENT
  Sex: Female

DRUGS (1)
  1. SARAFEM [Suspect]
     Active Substance: FLUOXETINE HYDROCHLORIDE
     Indication: DEPRESSION
     Dosage: 20 MG, UNK
     Route: 048
     Dates: start: 201607

REACTIONS (6)
  - Rash pustular [Not Recovered/Not Resolved]
  - Blister [Not Recovered/Not Resolved]
  - Product substitution issue [None]
  - Generalised erythema [Not Recovered/Not Resolved]
  - Rash pruritic [None]
  - Rash [Not Recovered/Not Resolved]
